FAERS Safety Report 13492712 (Version 1)
Quarter: 2017Q2

REPORT INFORMATION
  Report Type: Report from Study
  Country: CN (occurrence: CN)
  Receive Date: 20170427
  Receipt Date: 20170427
  Transmission Date: 20170830
  Serious: Yes (Other)
  Sender: FDA-Public Use
  Company Number: CN-MYLANLABS-2017M1025403

PATIENT

DRUGS (2)
  1. CYTARABINE. [Suspect]
     Active Substance: CYTARABINE
     Indication: ACUTE PROMYELOCYTIC LEUKAEMIA
     Dosage: 2000 MG/M2 FOR 4 DAYS
     Route: 065
  2. ARSENIC TRIOXIDE [Suspect]
     Active Substance: ARSENIC TRIOXIDE
     Indication: ACUTE PROMYELOCYTIC LEUKAEMIA
     Dosage: 10 MG/DAY
     Route: 042

REACTIONS (2)
  - Neutropenia [Unknown]
  - Psoriasis [Unknown]
